FAERS Safety Report 17390899 (Version 2)
Quarter: 2020Q1

REPORT INFORMATION
  Report Type: Report from Study
  Country: JP (occurrence: JP)
  Receive Date: 20200207
  Receipt Date: 20200220
  Transmission Date: 20200409
  Serious: Yes (Death, Other)
  Sender: FDA-Public Use
  Company Number: JP-SHIRE-JP202004598AA

PATIENT
  Sex: Male

DRUGS (1)
  1. VELAGLUCERASE ALFA [Suspect]
     Active Substance: VELAGLUCERASE ALFA
     Indication: GAUCHER^S DISEASE
     Dosage: 800 INTERNATIONAL UNIT/KILOGRAM, 1X/2WKS
     Route: 041
     Dates: start: 20160523, end: 201912

REACTIONS (2)
  - Arrhythmia [Not Recovered/Not Resolved]
  - Hyperkalaemia [Not Recovered/Not Resolved]
